FAERS Safety Report 5823962-4 (Version None)
Quarter: 2008Q3

REPORT INFORMATION
  Report Type: 
  Country: None (occurrence: None)
  Receive Date: 20080724
  Receipt Date: 20080711
  Transmission Date: 20090109
  Serious: Yes (Hospitalization)
  Sender: FDA-Public Use
  Company Number: 236244J08USA

PATIENT
  Age: 49 Year
  Sex: Male
  Weight: 91.173 kg

DRUGS (3)
  1. REBIF [Suspect]
     Indication: MULTIPLE SCLEROSIS
     Dosage: 44 MCG, 3 IN 1 WEEKS, SUBCUTANEOUS
     Route: 058
     Dates: start: 20050629
  2. UNSPECIFIED PAIN MEDICATION [Concomitant]
  3. UNSPECIFIED ABTIHYPERTENSIVE MEDICATION (ALL OTHER NON-THERAPEUTIC PRO [Concomitant]

REACTIONS (7)
  - AMNESIA [None]
  - CONDITION AGGRAVATED [None]
  - CYSTITIS [None]
  - LOSS OF CONSCIOUSNESS [None]
  - MALAISE [None]
  - MULTIPLE SCLEROSIS [None]
  - UNRESPONSIVE TO STIMULI [None]
